FAERS Safety Report 9299100 (Version 1)
Quarter: 2013Q2

REPORT INFORMATION
  Report Type: Spontaneous
  Country: US (occurrence: US)
  Receive Date: 20130520
  Receipt Date: 20130520
  Transmission Date: 20140414
  Serious: No
  Sender: FDA-Public Use
  Company Number: US-B.I. PHARMACEUTICALS,INC./RIDGEFIELD-2013-BI-13835BP

PATIENT
  Age: 62 Year
  Sex: Female
  Weight: 132 kg

DRUGS (3)
  1. JENTADUETO [Suspect]
     Indication: DIABETES MELLITUS
     Dosage: STRENGTH: 2.5 MG / 500 MG; DAILY DOSE: 5.0 MG / 1000 MG
     Route: 048
     Dates: start: 20130513
  2. CRESTOR [Concomitant]
     Indication: BLOOD CHOLESTEROL INCREASED
     Dosage: 20 MG
     Route: 048
     Dates: start: 20130513
  3. LOSARTAN [Concomitant]
     Indication: HYPERTENSION
     Dosage: 50 MG
     Route: 048
     Dates: start: 20130513

REACTIONS (6)
  - Tachycardia [Recovered/Resolved]
  - Hyperhidrosis [Not Recovered/Not Resolved]
  - Tremor [Recovered/Resolved]
  - Chills [Recovered/Resolved]
  - Abdominal pain upper [Not Recovered/Not Resolved]
  - Dizziness [Not Recovered/Not Resolved]
